FAERS Safety Report 8197827-X (Version None)
Quarter: 2012Q1

REPORT INFORMATION
  Report Type: 
  Country: None (occurrence: None)
  Receive Date: 20120309
  Receipt Date: 20120302
  Transmission Date: 20120608
  Serious: Yes (Death)
  Sender: FDA-Public Use
  Company Number: US-UCBSA-049314

PATIENT
  Age: 52 Year
  Sex: Male

DRUGS (3)
  1. PHENYTOIN [Suspect]
     Route: 048
  2. LEVETIRACETAM [Suspect]
     Route: 048
  3. BARBITURATE [Suspect]
     Route: 048

REACTIONS (3)
  - CARDIAC ARREST [None]
  - ANGER [None]
  - ACCIDENTAL OVERDOSE [None]
